FAERS Safety Report 9206464 (Version 2)
Quarter: 2013Q2

REPORT INFORMATION
  Report Type: Report from Study
  Country: DE (occurrence: DE)
  Receive Date: 20130403
  Receipt Date: 20130502
  Transmission Date: 20140414
  Serious: Yes (Hospitalization)
  Sender: FDA-Public Use
  Company Number: DE-UCBSA-081895

PATIENT
  Age: 36 Year
  Sex: Female

DRUGS (5)
  1. VIMPAT [Suspect]
     Indication: EPILEPSY
     Dosage: 50MG DAILY
     Dates: start: 20100608, end: 2010
  2. VIMPAT [Suspect]
     Indication: EPILEPSY
     Dosage: 400MG DAILY
     Dates: start: 2010
  3. LAMOTRIGINE [Concomitant]
     Indication: EPILEPSY
     Dosage: 300MG/DAY
  4. ZONISAMIDE [Concomitant]
     Indication: EPILEPSY
     Dosage: 400MG/DAY
     Dates: end: 2010
  5. ZONISAMIDE [Concomitant]
     Indication: EPILEPSY
     Dosage: 300MG/DAY
     Dates: start: 2011

REACTIONS (1)
  - Partial seizures [Unknown]
